FAERS Safety Report 7089339-1 (Version None)
Quarter: 2010Q4

REPORT INFORMATION
  Report Type: 
  Country: None (occurrence: None)
  Receive Date: 20101108
  Receipt Date: 20101026
  Transmission Date: 20110411
  Serious: No
  Sender: FDA-Public Use
  Company Number: US-B.I. PHARMACEUTICALS,INC./RIDGEFIELD-2010-BP-08397BP

PATIENT
  Age: 84 Year
  Sex: Female

DRUGS (4)
  1. TWYNSTA [Suspect]
     Indication: HYPERTENSION
     Route: 048
     Dates: start: 20100713
  2. TWYNSTA [Suspect]
     Route: 048
  3. CLONIDINE [Concomitant]
     Indication: HYPERTENSION
     Dosage: 0.1 MG
  4. SYNTHROID [Concomitant]
     Indication: THYROID DISORDER

REACTIONS (6)
  - BLOOD PRESSURE INCREASED [None]
  - CHEST PAIN [None]
  - FATIGUE [None]
  - NECK PAIN [None]
  - PAIN [None]
  - UTERINE ENLARGEMENT [None]
